FAERS Safety Report 7754058-2 (Version None)
Quarter: 2011Q3

REPORT INFORMATION
  Report Type: 
  Country: None (occurrence: None)
  Receive Date: 20110915
  Receipt Date: 20101119
  Transmission Date: 20111222
  Serious: No
  Sender: FDA-Public Use
  Company Number: US-BAYER-201029867NA

PATIENT
  Age: 52 Year
  Sex: Male

DRUGS (1)
  1. MAGNEVIST [Suspect]
     Indication: NUCLEAR MAGNETIC RESONANCE IMAGING BRAIN
     Route: 042
     Dates: start: 20100802, end: 20100802

REACTIONS (4)
  - LACRIMATION INCREASED [None]
  - NAUSEA [None]
  - RHINORRHOEA [None]
  - NASAL CONGESTION [None]
